FAERS Safety Report 5656185-2 (Version None)
Quarter: 2008Q1

REPORT INFORMATION
  Report Type: 
  Country: None (occurrence: None)
  Receive Date: 20080305
  Receipt Date: 20080219
  Transmission Date: 20080703
  Serious: Yes (Hospitalization, Disabling)
  Sender: FDA-Public Use
  Company Number: 2008S1002825

PATIENT
  Age: 83 Year
  Sex: Female

DRUGS (6)
  1. TAMOXIFEN CITRATE [Suspect]
     Indication: BREAST CANCER
     Dosage: 20 MG; ORAL
     Route: 048
     Dates: start: 20020101, end: 20080101
  2. CETIRIZINE HCL [Concomitant]
  3. CLOTRIMAZOLE [Concomitant]
  4. FUCIDIN /00065701/ [Concomitant]
  5. PRAXILENE [Concomitant]
  6. RANITIDINE [Concomitant]

REACTIONS (1)
  - VAGINAL PROLAPSE [None]
